FAERS Safety Report 9286684 (Version 1)
Quarter: 2013Q2

REPORT INFORMATION
  Report Type: Spontaneous
  Country: BE (occurrence: BE)
  Receive Date: 20130513
  Receipt Date: 20130513
  Transmission Date: 20140414
  Serious: Yes (Death, Hospitalization)
  Sender: FDA-Public Use
  Company Number: BE-B.I. PHARMACEUTICALS,INC./RIDGEFIELD-2013-BL-00237BL

PATIENT
  Age: 88 Year
  Sex: Female
  Weight: 60 kg

DRUGS (5)
  1. PRADAXA [Suspect]
     Indication: ATRIAL FIBRILLATION
     Dosage: 220 MG
     Route: 048
     Dates: start: 2011
  2. PRETERAX [Concomitant]
     Indication: HYPERTENSION
  3. CORUNO [Concomitant]
     Indication: HYPERTENSION
  4. EMCONCOR [Concomitant]
     Indication: HYPERTENSION
     Dosage: 2.5 MG
  5. EMCONCOR [Concomitant]
     Indication: ATRIAL FIBRILLATION

REACTIONS (1)
  - Cerebral haemorrhage [Fatal]
